FAERS Safety Report 16121873 (Version 1)
Quarter: 2019Q1

REPORT INFORMATION
  Report Type: Spontaneous
  Country: FR (occurrence: FR)
  Receive Date: 20190327
  Receipt Date: 20190327
  Transmission Date: 20190418
  Serious: Yes (Hospitalization, Other)
  Sender: FDA-Public Use
  Company Number: FR-BRISTOL-MYERS SQUIBB COMPANY-BMS-2019-028716

PATIENT
  Age: 89 Year
  Sex: Female
  Weight: 63.2 kg

DRUGS (2)
  1. SEROPLEX [Suspect]
     Active Substance: ESCITALOPRAM OXALATE
     Indication: DEPRESSION
     Dosage: 5 MILLIGRAM, QD
     Route: 048
     Dates: end: 20190123
  2. ELIQUIS [Suspect]
     Active Substance: APIXABAN
     Indication: CEREBROVASCULAR ACCIDENT PROPHYLAXIS
     Dosage: 5 MILLIGRAM, QD
     Route: 048
     Dates: start: 20180409, end: 20190121

REACTIONS (2)
  - Brain contusion [Recovering/Resolving]
  - Subcutaneous haematoma [Recovering/Resolving]

NARRATIVE: CASE EVENT DATE: 20190121
